FAERS Safety Report 13065251 (Version 4)
Quarter: 2018Q1

REPORT INFORMATION
  Report Type: Spontaneous
  Country: GB (occurrence: GB)
  Receive Date: 20161227
  Receipt Date: 20180330
  Transmission Date: 20180508
  Serious: Yes (Other)
  Sender: FDA-Public Use
  Company Number: GB-PFIZER INC-2016591011

PATIENT
  Age: 73 Year
  Sex: Male
  Weight: 90 kg

DRUGS (22)
  1. ABRAXANE [Suspect]
     Active Substance: PACLITAXEL
     Indication: PALLIATIVE CARE
     Dosage: DOSE REDUCED TO 60%
     Route: 041
     Dates: start: 20160726
  2. ABRAXANE [Suspect]
     Active Substance: PACLITAXEL
     Dosage: UNK
  3. ABRAXANE [Suspect]
     Active Substance: PACLITAXEL
     Dosage: 75 MG/M2, WEEKLY
     Route: 041
     Dates: start: 20160726
  4. ASPIRIN /00002701/ [Concomitant]
     Active Substance: ASPIRIN
     Indication: TRANSIENT ISCHAEMIC ATTACK
  5. DOMPERIDONE [Concomitant]
     Active Substance: DOMPERIDONE
     Indication: NAUSEA
     Dosage: 10 MG
     Route: 048
     Dates: start: 20160810
  6. SIMVASTATIN. [Concomitant]
     Active Substance: SIMVASTATIN
     Indication: CARDIAC DISORDER
     Dosage: 40 MG, 1X/DAY
     Route: 048
     Dates: start: 200809
  7. ABRAXANE [Suspect]
     Active Substance: PACLITAXEL
     Dosage: 1222.6 MG, UNK
     Route: 041
  8. PERINDOPRIL [Concomitant]
     Active Substance: PERINDOPRIL
     Indication: TRANSIENT ISCHAEMIC ATTACK
     Dosage: 2.5 MG, 1X/DAY
     Route: 048
     Dates: start: 200809
  9. PERINDOPRIL [Concomitant]
     Active Substance: PERINDOPRIL
     Indication: CARDIAC DISORDER
  10. ABRAXANE [Suspect]
     Active Substance: PACLITAXEL
     Dosage: 155 MG
     Route: 041
     Dates: start: 20160831
  11. ABRAXANE [Suspect]
     Active Substance: PACLITAXEL
     Dosage: 75 MG/M2, UNK (DOSE REDUCED TO 60%)
  12. ASPIRIN /00002701/ [Concomitant]
     Active Substance: ASPIRIN
     Indication: CARDIAC DISORDER
     Dosage: 75 MG, 1X/DAY
     Route: 048
     Dates: start: 200809
  13. OMEPRAZOLE. [Concomitant]
     Active Substance: OMEPRAZOLE
     Indication: GASTRITIS PROPHYLAXIS
     Dosage: 20 MG, 1X/DAY
     Route: 048
     Dates: start: 20140523
  14. GEMCITABINE HYDROCHLORIDE. [Suspect]
     Active Substance: GEMCITABINE HYDROCHLORIDE
     Indication: PALLIATIVE CARE
     Dosage: 1600 MG, WEEKLY (1223.6 MG)
     Route: 041
     Dates: start: 20160810
  15. ABRAXANE [Suspect]
     Active Substance: PACLITAXEL
     Dosage: 200 MG
     Route: 041
     Dates: start: 20160810, end: 20160830
  16. ABRAXANE [Suspect]
     Active Substance: PACLITAXEL
     Dosage: DOSE REDUCED TO 60%
     Route: 041
  17. GEMCITABINE HYDROCHLORIDE. [Suspect]
     Active Substance: GEMCITABINE HYDROCHLORIDE
     Dosage: 1222.6 MG, WEEKLY
     Route: 041
     Dates: start: 20160810
  18. ABRAXANE [Suspect]
     Active Substance: PACLITAXEL
     Dosage: 1222.6 MG, UNK
     Route: 041
  19. SIMVASTATIN. [Concomitant]
     Active Substance: SIMVASTATIN
     Indication: TRANSIENT ISCHAEMIC ATTACK
  20. GEMCITABINE HYDROCHLORIDE. [Suspect]
     Active Substance: GEMCITABINE HYDROCHLORIDE
     Dosage: 1222.6 MG, WEEKLY
     Route: 041
     Dates: start: 20160901
  21. ABRAXANE [Suspect]
     Active Substance: PACLITAXEL
     Dosage: 1600 MG, WEEKLY
     Route: 041
  22. GAVISCON /00237601/ [Concomitant]
     Active Substance: ALUMINUM HYDROXIDE\MAGNESIUM CARBONATE
     Indication: DYSPEPSIA
     Dosage: 15 MG
     Route: 048
     Dates: start: 2016

REACTIONS (10)
  - Fatigue [Not Recovered/Not Resolved]
  - Nausea [Not Recovered/Not Resolved]
  - Neoplasm progression [Unknown]
  - Mucosal inflammation [Recovered/Resolved]
  - Neutrophil count decreased [Recovered/Resolved]
  - Alopecia [Not Recovered/Not Resolved]
  - Muscle spasms [Not Recovered/Not Resolved]
  - Dyspnoea [Not Recovered/Not Resolved]
  - Hyperglycaemia [Not Recovered/Not Resolved]
  - White blood cell count decreased [Recovered/Resolved]

NARRATIVE: CASE EVENT DATE: 20160815
